FAERS Safety Report 8584080-8 (Version None)
Quarter: 2012Q3

REPORT INFORMATION
  Report Type: 
  Country: None (occurrence: None)
  Receive Date: 20120810
  Receipt Date: 20120726
  Transmission Date: 20120928
  Serious: Yes (Other)
  Sender: FDA-Public Use
  Company Number: US-009507513-1207USA011526

PATIENT

DRUGS (7)
  1. XANAX [Concomitant]
  2. NEUPOGEN [Concomitant]
  3. PROCRIT [Concomitant]
     Route: 011
  4. LEXAPRO [Concomitant]
  5. COPEGUS [Suspect]
     Dosage: 600 UNK, UNK
     Route: 048
  6. VICTRELIS [Suspect]
     Route: 048
  7. PEGASYS [Suspect]
     Dosage: 180 UNK, UNK
     Route: 058

REACTIONS (15)
  - FEAR [None]
  - BONE PAIN [None]
  - RASH PRURITIC [None]
  - DEPRESSION [None]
  - INSOMNIA [None]
  - NAUSEA [None]
  - MUSCULOSKELETAL PAIN [None]
  - ANGER [None]
  - WHITE BLOOD CELL COUNT DECREASED [None]
  - ANXIETY [None]
  - ABDOMINAL PAIN UPPER [None]
  - RED BLOOD CELL COUNT DECREASED [None]
  - DYSGEUSIA [None]
  - FLATULENCE [None]
  - RASH PAPULAR [None]
